FAERS Safety Report 13353531 (Version 1)
Quarter: 2017Q1

REPORT INFORMATION
  Report Type: Spontaneous
  Country: FR (occurrence: FR)
  Receive Date: 20170321
  Receipt Date: 20170321
  Transmission Date: 20170429
  Serious: Yes (Hospitalization, Other)
  Sender: FDA-Public Use
  Company Number: FR-ZYDUS-014301

PATIENT
  Age: 77 Year
  Sex: Female

DRUGS (1)
  1. METFORMIN [Suspect]
     Active Substance: METFORMIN HYDROCHLORIDE
     Indication: TYPE 2 DIABETES MELLITUS
     Route: 065

REACTIONS (12)
  - Hyperkalaemia [Recovered/Resolved]
  - Lactic acidosis [Recovered/Resolved]
  - Delirium [Recovered/Resolved]
  - Somnolence [Recovered/Resolved]
  - Blood creatinine decreased [Recovered/Resolved]
  - Gastroenteritis viral [Unknown]
  - Vomiting [Recovered/Resolved]
  - Blood bicarbonate decreased [Recovered/Resolved]
  - Blood lactic acid increased [Recovered/Resolved]
  - Acute kidney injury [Recovered/Resolved]
  - Respiratory rate increased [Recovered/Resolved]
  - Azotaemia [Recovered/Resolved]
